FAERS Safety Report 16013807 (Version 1)
Quarter: 2019Q1

REPORT INFORMATION
  Report Type: Report from Study
  Country: IT (occurrence: IT)
  Receive Date: 20190227
  Receipt Date: 20190227
  Transmission Date: 20190418
  Serious: Yes (Other)
  Sender: FDA-Public Use
  Company Number: PHHY2019IT032651

PATIENT
  Age: 30 Year
  Sex: Female

DRUGS (4)
  1. DEURSIL [Concomitant]
     Active Substance: URSODIOL
     Indication: PROPHYLAXIS
     Dosage: 300 MG, UNK
     Route: 048
     Dates: start: 20180519
  2. DAYLETTE [Concomitant]
     Active Substance: DROSPIRENONE\ETHINYL ESTRADIOL
     Indication: CONTRACEPTION
     Dosage: (MG)
     Route: 048
     Dates: start: 201809
  3. DOSTINEX [Concomitant]
     Active Substance: CABERGOLINE
     Indication: INSULIN-LIKE GROWTH FACTOR INCREASED
     Dosage: 0.25 MG, UNK
     Route: 048
     Dates: start: 20181203
  4. SIGNIFOR LAR [Suspect]
     Active Substance: PASIREOTIDE
     Indication: ACROMEGALY
     Route: 065

REACTIONS (2)
  - Ovarian cyst [Recovered/Resolved]
  - Diabetes mellitus [Not Recovered/Not Resolved]

NARRATIVE: CASE EVENT DATE: 20180909
